FAERS Safety Report 9924155 (Version 2)
Quarter: 2014Q3

REPORT INFORMATION
  Report Type: Spontaneous
  Country: JP (occurrence: JP)
  Receive Date: 20140226
  Receipt Date: 20140718
  Transmission Date: 20150326
  Serious: Yes (Hospitalization)
  Sender: FDA-Public Use
  Company Number: JP-AMGEN-JPNSP2014013339

PATIENT
  Age: 74 Year
  Sex: Female
  Weight: 61 kg

DRUGS (7)
  1. ENBREL [Suspect]
     Active Substance: ETANERCEPT
     Indication: RHEUMATOID ARTHRITIS
     Dosage: 25 MG, WEEKLY
     Route: 058
     Dates: start: 20111212, end: 20121128
  2. RIMATIL [Suspect]
     Active Substance: BUCILLAMINE
     Dosage: 200 MG, DAILY
     Route: 065
     Dates: start: 201205, end: 201401
  3. RIMATIL [Suspect]
     Active Substance: BUCILLAMINE
     Dosage: 300 MG, DAILY
     Route: 065
     Dates: start: 201110, end: 201205
  4. RIMATIL [Suspect]
     Active Substance: BUCILLAMINE
     Dosage: 200 MG, DAILY
     Route: 065
     Dates: start: 201109, end: 201110
  5. ENBREL [Suspect]
     Active Substance: ETANERCEPT
     Dosage: 25 MG, QWK
     Route: 065
     Dates: start: 20131227, end: 20140129
  6. RIMATIL [Suspect]
     Active Substance: BUCILLAMINE
     Indication: RHEUMATOID ARTHRITIS
     Dosage: 100 MG, DAILY
     Route: 065
     Dates: start: 20110808, end: 201109
  7. ENBREL [Suspect]
     Active Substance: ETANERCEPT
     Dosage: 25 MG, WEEKLY
     Route: 058
     Dates: start: 20130531, end: 201310

REACTIONS (1)
  - Aplastic anaemia [Recovering/Resolving]

NARRATIVE: CASE EVENT DATE: 201307
